FAERS Safety Report 18962590 (Version 1)
Quarter: 2021Q1

REPORT INFORMATION
  Report Type: Spontaneous
  Country: US (occurrence: US)
  Receive Date: 20210302
  Receipt Date: 20210302
  Transmission Date: 20210420
  Serious: Yes (Other)
  Sender: FDA-Public Use
  Company Number: None

PATIENT
  Age: 61 Year
  Sex: Female

DRUGS (2)
  1. METROPOLOL [Concomitant]
     Active Substance: METOPROLOL
  2. CIPROFLOXACIN. [Suspect]
     Active Substance: CIPROFLOXACIN
     Indication: DIVERTICULITIS
     Route: 048
     Dates: start: 20210212, end: 20210215

REACTIONS (8)
  - Muscle twitching [None]
  - Erythema [None]
  - Paraesthesia [None]
  - Urticaria [None]
  - Feeling hot [None]
  - Eye disorder [None]
  - Arthralgia [None]
  - Anxiety [None]

NARRATIVE: CASE EVENT DATE: 20210215
